FAERS Safety Report 4585161-6 (Version None)
Quarter: 2005Q1

REPORT INFORMATION
  Report Type: 
  Country: None (occurrence: None)
  Receive Date: 20050217
  Receipt Date: 20050113
  Transmission Date: 20050727
  Serious: No
  Sender: FDA-Public Use
  Company Number: US-GLAXOSMITHKLINE-A0540539A

PATIENT
  Age: 31 Year
  Sex: Female

DRUGS (4)
  1. WELLBUTRIN XL [Suspect]
     Indication: DEPRESSION
     Dosage: 300MG PER DAY
     Route: 048
     Dates: start: 20040101
  2. TRAZODONE [Concomitant]
  3. LAMICTAL [Concomitant]
  4. ZOLOFT [Concomitant]

REACTIONS (1)
  - HYPERHIDROSIS [None]
